FAERS Safety Report 8285419-3 (Version None)
Quarter: 2012Q2

REPORT INFORMATION
  Report Type: 
  Country: None (occurrence: None)
  Receive Date: 20120413
  Receipt Date: 20111013
  Transmission Date: 20120825
  Serious: No
  Sender: FDA-Public Use
  Company Number: US-ASTRAZENECA-2011SE61770

PATIENT
  Age: 35 Year
  Sex: Male
  Weight: 86.2 kg

DRUGS (2)
  1. NEXIUM [Suspect]
     Indication: GASTRIC ULCER
     Dosage: 44.5 MG, DAILY
     Route: 048
     Dates: start: 20111001
  2. NEXIUM [Suspect]
     Indication: HIATUS HERNIA
     Dosage: 44.5 MG, DAILY
     Route: 048
     Dates: start: 20111001

REACTIONS (3)
  - ABDOMINAL PAIN [None]
  - OFF LABEL USE [None]
  - CONSTIPATION [None]
